FAERS Safety Report 22059078 (Version 1)
Quarter: 2023Q1

REPORT INFORMATION
  Report Type: Report from Study
  Country: IN (occurrence: None)
  Receive Date: 20230303
  Receipt Date: 20230303
  Transmission Date: 20230418
  Serious: Yes (Hospitalization)
  Sender: FDA-Public Use
  Company Number: IN-Merck Healthcare KGaA-9379244

PATIENT
  Age: 60 Year
  Sex: Male

DRUGS (1)
  1. BAVENCIO [Suspect]
     Active Substance: AVELUMAB
     Indication: Renal cell carcinoma
     Route: 042
     Dates: start: 20230116

REACTIONS (2)
  - Heart rate decreased [Recovering/Resolving]
  - Off label use [Unknown]

NARRATIVE: CASE EVENT DATE: 20230225
